FAERS Safety Report 5786799-0 (Version None)
Quarter: 2008Q2

REPORT INFORMATION
  Report Type: 
  Country: None (occurrence: None)
  Receive Date: 20080620
  Receipt Date: 20080614
  Transmission Date: 20081010
  Serious: Yes (Other)
  Sender: FDA-Public Use
  Company Number: CHPA2008US10026

PATIENT
  Sex: Female

DRUGS (1)
  1. GAS-X  UNKNOWN (NCH) (UNKNOWN) UNKNOWN [Suspect]
     Indication: SUICIDE ATTEMPT
     Dosage: 1 DF, ORAL
     Route: 048
     Dates: start: 20080614, end: 20080614

REACTIONS (2)
  - ANAL HAEMORRHAGE [None]
  - SUICIDE ATTEMPT [None]
